FAERS Safety Report 13405846 (Version 2)
Quarter: 2017Q2

REPORT INFORMATION
  Report Type: Spontaneous
  Country: US (occurrence: US)
  Receive Date: 20170405
  Receipt Date: 20170615
  Transmission Date: 20170830
  Serious: No
  Sender: FDA-Public Use
  Company Number: US-PFIZER INC-2017147265

PATIENT
  Age: 82 Year
  Sex: Female
  Weight: 62.14 kg

DRUGS (3)
  1. ADVIL PM [Suspect]
     Active Substance: DIPHENHYDRAMINE CITRATE\IBUPROFEN
     Indication: INSOMNIA
     Dosage: [IBUPROFEN 200MG]/[DIPHENHYDRAMINE HCL 25MG], 1 DF, 1X/DAY BEFORE BED
     Dates: start: 201703
  2. ADVIL PM [Suspect]
     Active Substance: DIPHENHYDRAMINE CITRATE\IBUPROFEN
     Dosage: [IBUPROFEN 200MG]/[DIPHENHYDRAMINE HCL 25MG], 2 DF, 1X/DAY BEFORE BED
  3. LISINOPRIL. [Concomitant]
     Active Substance: LISINOPRIL
     Indication: HYPERTENSION
     Dosage: 20MG ONCE IN THE MORNING

REACTIONS (1)
  - Drug ineffective [Recovered/Resolved]

NARRATIVE: CASE EVENT DATE: 201703
